FAERS Safety Report 16089264 (Version 4)
Quarter: 2019Q2

REPORT INFORMATION
  Report Type: Spontaneous
  Country: CA (occurrence: CA)
  Receive Date: 20190319
  Receipt Date: 20190523
  Transmission Date: 20190711
  Serious: Yes (Other)
  Sender: FDA-Public Use
  Company Number: CA-PFIZER INC-2019109468

PATIENT
  Age: 15 Year

DRUGS (1)
  1. PROSTIN E2 [Suspect]
     Active Substance: DINOPROSTONE
     Indication: LABOUR INDUCTION
     Dosage: 2 MG, UNK
     Dates: start: 20190228, end: 20190228

REACTIONS (4)
  - Premature rupture of membranes [Unknown]
  - Uterine rupture [Unknown]
  - Uterine hypertonus [Unknown]
  - Abnormal labour [Unknown]
